FAERS Safety Report 9719396 (Version 2)
Quarter: 2014Q1

REPORT INFORMATION
  Report Type: Spontaneous
  Country: US (occurrence: US)
  Receive Date: 20131128
  Receipt Date: 20140109
  Transmission Date: 20141002
  Serious: No
  Sender: FDA-Public Use
  Company Number: US-009507513-1311USA010898

PATIENT
  Sex: Male

DRUGS (1)
  1. AZASITE [Suspect]
     Dosage: ONE DROP IN EACH EYE, ONCE DAILY
     Route: 031
     Dates: start: 20131116

REACTIONS (3)
  - Off label use [Unknown]
  - Product quality issue [Unknown]
  - No adverse event [Unknown]
